FAERS Safety Report 8399906-0 (Version None)
Quarter: 2012Q2

REPORT INFORMATION
  Report Type: 
  Country: None (occurrence: None)
  Receive Date: 20120531
  Receipt Date: 20120521
  Transmission Date: 20120825
  Serious: Yes (Hospitalization)
  Sender: FDA-Public Use
  Company Number: FI-ELI_LILLY_AND_COMPANY-FI201205007457

PATIENT
  Sex: Female

DRUGS (7)
  1. CORTISONE ACETATE [Concomitant]
     Dosage: UNK
  2. PANACOD [Concomitant]
     Indication: PAIN
     Dosage: UNK
  3. ACETAMINOPHEN [Concomitant]
     Indication: PAIN
     Dosage: UNK
  4. DIGITALIS [Concomitant]
     Indication: CARDIAC FAILURE
     Dosage: UNK
  5. CAD [Concomitant]
     Indication: MEDICAL DIET
     Dosage: UNK
  6. FORTEO [Suspect]
     Indication: OSTEOPOROSIS
     Dosage: 20 UG, QD
     Route: 058
     Dates: start: 20120305
  7. SIMVASTATIN [Concomitant]
     Indication: BLOOD CHOLESTEROL ABNORMAL
     Dosage: UNK

REACTIONS (1)
  - ABSCESS RUPTURE [None]
